FAERS Safety Report 4544138-7 (Version None)
Quarter: 2005Q1

REPORT INFORMATION
  Report Type: 
  Country: None (occurrence: None)
  Receive Date: 20050104
  Receipt Date: 20040907
  Transmission Date: 20050727
  Serious: Yes (Death, Hospitalization)
  Sender: FDA-Public Use
  Company Number: US-GLAXOSMITHKLINE-A0525196A

PATIENT
  Sex: Male

DRUGS (8)
  1. AVANDIA [Suspect]
     Indication: DRUG USE FOR UNKNOWN INDICATION
     Dosage: 8MG PER DAY
     Route: 048
     Dates: start: 19991201, end: 20010201
  2. LEVAQUIN [Concomitant]
     Indication: BRONCHITIS
     Dosage: 500MG PER DAY
     Dates: end: 20010201
  3. HUMIBID LA [Concomitant]
     Indication: BRONCHITIS
     Dosage: 600MG TWICE PER DAY
     Route: 048
     Dates: end: 20010201
  4. PROVENTIL [Concomitant]
     Indication: DRUG USE FOR UNKNOWN INDICATION
     Route: 055
     Dates: end: 20010201
  5. HYDROCODONE [Concomitant]
     Indication: DRUG USE FOR UNKNOWN INDICATION
     Dates: end: 20010201
  6. GUAIFENESIN [Concomitant]
     Indication: BRONCHITIS
     Route: 048
     Dates: end: 20010201
  7. HUMALOG [Concomitant]
     Indication: DIABETES MELLITUS NON-INSULIN-DEPENDENT
     Dates: end: 20010201
  8. NPH INSULIN [Concomitant]
     Indication: DIABETES MELLITUS NON-INSULIN-DEPENDENT
     Dosage: 18UNIT AT NIGHT
     Dates: end: 20010201

REACTIONS (14)
  - ANXIETY [None]
  - BLOOD MAGNESIUM DECREASED [None]
  - CARDIAC FAILURE CONGESTIVE [None]
  - CORONARY ARTERY DISEASE [None]
  - HYPERVENTILATION [None]
  - ISCHAEMIC CARDIOMYOPATHY [None]
  - MALAISE [None]
  - NAUSEA [None]
  - PALLOR [None]
  - PLEURAL EFFUSION [None]
  - POLYURIA [None]
  - PRODUCTIVE COUGH [None]
  - TACHYCARDIA [None]
  - VOMITING [None]
